FAERS Safety Report 5939366-X (Version None)
Quarter: 2008Q4

REPORT INFORMATION
  Report Type: 
  Country: None (occurrence: None)
  Receive Date: 20081103
  Receipt Date: 20081028
  Transmission Date: 20090506
  Serious: No
  Sender: FDA-Public Use
  Company Number: US-B.I. PHARMACEUTICALS,INC./RIDGEFIELD-2008-BP-15574BP

PATIENT
  Age: 90 Year
  Sex: Male

DRUGS (3)
  1. FLOMAX [Suspect]
     Indication: BENIGN PROSTATIC HYPERPLASIA
     Dosage: .4MG
     Dates: start: 20080901
  2. BENICAR [Concomitant]
  3. HYDROCHLOROTHIAZIDE [Concomitant]

REACTIONS (2)
  - HEART RATE INCREASED [None]
  - TACHYCARDIA [None]
